FAERS Safety Report 18285865 (Version 2)
Quarter: 2020Q3

REPORT INFORMATION
  Report Type: Spontaneous
  Country: SE (occurrence: SE)
  Receive Date: 20200919
  Receipt Date: 20200922
  Transmission Date: 20201103
  Serious: Yes (Death)
  Sender: FDA-Public Use
  Company Number: SE-ACCORD-201576

PATIENT
  Age: 82 Year
  Sex: Female

DRUGS (10)
  1. BETOLVIDON [Concomitant]
     Active Substance: CYANOCOBALAMIN
     Dosage: DOSE AND FREQUENCY UNKNOWN
     Dates: end: 20200715
  2. DONEPEZIL/DONEPEZIL HYDROCHLORIDE [Suspect]
     Active Substance: DONEPEZIL HYDROCHLORIDE
     Indication: DEMENTIA
     Dosage: 10MG 0+1
     Route: 048
     Dates: end: 20200714
  3. ATORBIR [Concomitant]
     Active Substance: ATORVASTATIN
     Dosage: DOSE AND FREQUENCY UNKNOWN
     Route: 065
     Dates: end: 20200725
  4. ALVEDON [Concomitant]
     Active Substance: ACETAMINOPHEN
     Dosage: DOSE AND FREQUENCY UNKNOWN
     Route: 065
     Dates: end: 202007
  5. ISOPTIN [Concomitant]
     Active Substance: VERAPAMIL HYDROCHLORIDE
     Dosage: DOSE AND FREQUENCY UNKNOWN
     Dates: end: 20200715
  6. WARAN [Concomitant]
     Active Substance: WARFARIN SODIUM
     Dates: end: 20200704
  7. BISOPROLOL [Concomitant]
     Active Substance: BISOPROLOL
     Dosage: DOSE AND FREQUENCY UNKNOWN
     Dates: end: 20200705
  8. DIGOXIN. [Concomitant]
     Active Substance: DIGOXIN
     Dosage: DOSE AND FREQUENCY UNKNOWN
     Route: 065
     Dates: end: 20200714
  9. FOLACIN [Concomitant]
     Dosage: DOSE AND FREQUENCY UNKNOWN
     Route: 065
     Dates: end: 20200715
  10. LEVAXIN [Concomitant]
     Active Substance: LEVOTHYROXINE SODIUM
     Dosage: DOSE AND FREQUENCY UNKNOWN
     Dates: end: 20200725

REACTIONS (1)
  - Hepatic cirrhosis [Fatal]

NARRATIVE: CASE EVENT DATE: 20200705
